FAERS Safety Report 10208099 (Version 1)
Quarter: 2014Q2

REPORT INFORMATION
  Report Type: Spontaneous
  Country: US (occurrence: None)
  Receive Date: 20140528
  Receipt Date: 20140528
  Transmission Date: 20141212
  Serious: Yes (Other)
  Sender: FDA-Public Use
  Company Number: None

PATIENT
  Sex: Female

DRUGS (3)
  1. CAPECITABINE [Suspect]
     Indication: BREAST CANCER
     Route: 048
     Dates: start: 20140416, end: 20140527
  2. DRONABINOL [Concomitant]
  3. TAMOXIFEN [Concomitant]

REACTIONS (5)
  - Onychalgia [None]
  - Dry throat [None]
  - Throat irritation [None]
  - Oropharyngeal pain [None]
  - Pain in extremity [None]
